FAERS Safety Report 8951212 (Version 4)
Quarter: 2015Q1

REPORT INFORMATION
  Report Type: Report from Study
  Country: CA (occurrence: CA)
  Receive Date: 20121207
  Receipt Date: 20150220
  Transmission Date: 20150721
  Serious: Yes (Other)
  Sender: FDA-Public Use
  Company Number: PHHY2012CA041556

PATIENT
  Age: 88 Year
  Sex: Male

DRUGS (1)
  1. SANDOSTATIN LAR DEPOT [Suspect]
     Active Substance: OCTREOTIDE ACETATE
     Indication: NEUROENDOCRINE TUMOUR
     Dosage: 30 MG, EVERY 4 WEEKS
     Route: 030
     Dates: start: 20120126

REACTIONS (9)
  - Pyrexia [Recovered/Resolved]
  - Influenza [Unknown]
  - Hepatic lesion [Unknown]
  - Tooth injury [Unknown]
  - Blood pressure systolic increased [Unknown]
  - Chills [Recovered/Resolved]
  - Nephrolithiasis [Unknown]
  - Malaise [Recovered/Resolved]
  - Dental caries [Unknown]

NARRATIVE: CASE EVENT DATE: 201210
